FAERS Safety Report 6154785-7 (Version None)
Quarter: 2009Q2

REPORT INFORMATION
  Report Type: 
  Country: None (occurrence: None)
  Receive Date: 20090414
  Receipt Date: 20090406
  Transmission Date: 20091009
  Serious: Yes (Hospitalization)
  Sender: FDA-Public Use
  Company Number: PHHY2009DK10607

PATIENT
  Age: 42 Year
  Sex: Female

DRUGS (2)
  1. RITALIN TAB [Suspect]
     Indication: ATTENTION DEFICIT/HYPERACTIVITY DISORDER
     Dosage: 40 MG/DAY
     Dates: start: 20081105, end: 20090228
  2. RITALIN TAB [Suspect]
     Dosage: UNK
     Dates: start: 20090312

REACTIONS (6)
  - FACIAL PALSY [None]
  - FACIAL PARESIS [None]
  - HEADACHE [None]
  - HERPES VIRUS INFECTION [None]
  - MEMORY IMPAIRMENT [None]
  - MENINGITIS [None]
